FAERS Safety Report 4552271-9 (Version None)
Quarter: 2005Q1

REPORT INFORMATION
  Report Type: 
  Country: None (occurrence: None)
  Receive Date: 20050114
  Receipt Date: 20040707
  Transmission Date: 20050727
  Serious: Yes (Other)
  Sender: FDA-Public Use
  Company Number: PHNU2004DE02421

PATIENT
  Sex: Male

DRUGS (4)
  1. TRILEPTAL [Suspect]
     Indication: EPILEPSY
     Dosage: 2700 MG/D (1200-300-1200)
     Route: 048
     Dates: start: 20010101
  2. KEPPRA [Concomitant]
     Indication: EPILEPSY
     Dosage: 5 DF/D (2-1-2)
     Route: 048
     Dates: start: 20010101
  3. OMEPRAZOLE [Concomitant]
     Indication: REFLUX OESOPHAGITIS
     Dosage: 1 DF, BID
     Route: 048
  4. CARBAMAZEPINE [Suspect]

REACTIONS (6)
  - GAMMA-GLUTAMYLTRANSFERASE INCREASED [None]
  - HEPATIC CYST [None]
  - HEPATIC ENZYME ABNORMAL [None]
  - HEPATIC STEATOSIS [None]
  - HEPATOMEGALY [None]
  - HYPERAMMONAEMIA [None]
